FAERS Safety Report 6195035-5 (Version None)
Quarter: 2009Q2

REPORT INFORMATION
  Report Type: 
  Country: None (occurrence: None)
  Receive Date: 20090519
  Receipt Date: 20090512
  Transmission Date: 20091009
  Serious: Yes (Other)
  Sender: FDA-Public Use
  Company Number: B0574545A

PATIENT
  Age: 51 Year
  Sex: Male

DRUGS (1)
  1. REQUIP [Suspect]
     Indication: PARKINSON'S DISEASE
     Dosage: 1.5MG PER DAY
     Route: 065

REACTIONS (3)
  - HYPERTONIA [None]
  - PARKINSON'S DISEASE [None]
  - PRODUCTIVE COUGH [None]
